FAERS Safety Report 17452711 (Version 2)
Quarter: 2020Q1

REPORT INFORMATION
  Report Type: Spontaneous
  Country: BR (occurrence: BR)
  Receive Date: 20200224
  Receipt Date: 20200311
  Transmission Date: 20200409
  Serious: Yes (Disabling, Other)
  Sender: FDA-Public Use
  Company Number: BR-ALLERGAN-2008013US

PATIENT
  Sex: Female

DRUGS (4)
  1. HUMIRA [Interacting]
     Active Substance: ADALIMUMAB
     Indication: RHEUMATOID ARTHRITIS
  2. OZURDEX [Suspect]
     Active Substance: DEXAMETHASONE
     Indication: UVEITIS
     Dosage: 0.7 MG, SINGLE
     Route: 031
  3. OZURDEX [Interacting]
     Active Substance: DEXAMETHASONE
     Indication: MACULAR OEDEMA
  4. ARAVA [Interacting]
     Active Substance: LEFLUNOMIDE
     Indication: RHEUMATOID ARTHRITIS

REACTIONS (5)
  - Blindness [Not Recovered/Not Resolved]
  - Vitrectomy [Unknown]
  - Necrotising retinitis [Recovered/Resolved with Sequelae]
  - Drug interaction [Unknown]
  - Immunosuppression [Unknown]

NARRATIVE: CASE EVENT DATE: 201912
